FAERS Safety Report 11411356 (Version 2)
Quarter: 2015Q4

REPORT INFORMATION
  Report Type: Spontaneous
  Country: US (occurrence: US)
  Receive Date: 20150824
  Receipt Date: 20151019
  Transmission Date: 20160304
  Serious: No
  Sender: FDA-Public Use
  Company Number: US-009507513-1508USA001220

PATIENT
  Sex: Female
  Weight: 54.42 kg

DRUGS (1)
  1. INTRON A [Suspect]
     Active Substance: INTERFERON ALFA-2B
     Indication: BLADDER CANCER
     Dosage: 1 ML, TOTAL DAILY DOSE 50 UNITS, QW
     Route: 043

REACTIONS (2)
  - Fatigue [Unknown]
  - Headache [Recovered/Resolved]
